FAERS Safety Report 23742213 (Version 1)
Quarter: 2024Q2

REPORT INFORMATION
  Report Type: Spontaneous
  Country: US (occurrence: None)
  Receive Date: 20240413
  Receipt Date: 20240413
  Transmission Date: 20240715
  Serious: No
  Sender: FDA-Public Use
  Company Number: None

PATIENT
  Sex: Female
  Weight: 68.7 kg

DRUGS (3)
  1. FLUOROURACIL [Suspect]
     Active Substance: FLUOROURACIL
  2. Irinotecan Liposome [Concomitant]
  3. LEUCOVORIN CALCIUM [Concomitant]

REACTIONS (9)
  - Lower gastrointestinal haemorrhage [None]
  - Anaemia [None]
  - Red blood cell transfusion [None]
  - Erosive oesophagitis [None]
  - Duodenal ulcer haemorrhage [None]
  - Gastric antral vascular ectasia [None]
  - Acquired oesophageal web [None]
  - Hiatus hernia [None]
  - Small intestine carcinoma [None]

NARRATIVE: CASE EVENT DATE: 20230823
